FAERS Safety Report 9750044 (Version 2)
Quarter: 2013Q4

REPORT INFORMATION
  Report Type: Spontaneous
  Country: GB (occurrence: GB)
  Receive Date: 20131212
  Receipt Date: 20131212
  Transmission Date: 20140711
  Serious: No
  Sender: FDA-Public Use
  Company Number: GB-GILEAD-GB-CVT-090716

PATIENT
  Age: 87 Year
  Sex: Male

DRUGS (8)
  1. RANEXA [Suspect]
     Indication: ANGINA PECTORIS
     Dates: start: 20090909
  2. ISOSORBIDE MONONITRATE [Concomitant]
     Indication: ANGINA PECTORIS
  3. CARVEDILOL [Concomitant]
     Indication: ANGINA PECTORIS
  4. AMLODIPINE [Concomitant]
     Indication: ANGINA PECTORIS
  5. CLOPIDOGREL                        /01220701/ [Concomitant]
  6. OMEPRAZOLE [Concomitant]
  7. SIMVASTATIN [Concomitant]
  8. ASPIRIN                            /00002701/ [Concomitant]

REACTIONS (3)
  - Insomnia [Recovering/Resolving]
  - Rash [Recovering/Resolving]
  - Pruritus [Recovering/Resolving]
